FAERS Safety Report 25344937 (Version 1)
Quarter: 2025Q2

REPORT INFORMATION
  Report Type: Spontaneous
  Country: PL (occurrence: PL)
  Receive Date: 20250522
  Receipt Date: 20250522
  Transmission Date: 20250717
  Serious: Yes (Hospitalization, Other)
  Sender: TAKEDA
  Company Number: PL-SANDOZ-SDZ2025PL026770

PATIENT
  Age: 59 Year
  Sex: Male

DRUGS (10)
  1. ICLUSIG [Suspect]
     Active Substance: PONATINIB HYDROCHLORIDE
     Indication: Product used for unknown indication
  2. DASATINIB [Suspect]
     Active Substance: DASATINIB
     Indication: Product used for unknown indication
  3. DASATINIB [Suspect]
     Active Substance: DASATINIB
  4. DASATINIB [Suspect]
     Active Substance: DASATINIB
  5. AZACITIDINE [Suspect]
     Active Substance: AZACITIDINE
     Indication: Product used for unknown indication
  6. HYDROXYUREA [Suspect]
     Active Substance: HYDROXYUREA
     Indication: Product used for unknown indication
  7. ENOXAPARIN SODIUM [Suspect]
     Active Substance: ENOXAPARIN SODIUM
     Indication: Product used for unknown indication
  8. ELIQUIS [Suspect]
     Active Substance: APIXABAN
     Indication: Product used for unknown indication
  9. VIDAZA [Suspect]
     Active Substance: AZACITIDINE
     Indication: Product used for unknown indication
  10. IMATINIB [Suspect]
     Active Substance: IMATINIB
     Indication: Product used for unknown indication

REACTIONS (8)
  - Thrombocytopenia [Unknown]
  - Anaemia [Unknown]
  - Neutropenia [Unknown]
  - Myeloid leukaemia [Unknown]
  - Leukocytosis [Unknown]
  - Night sweats [Unknown]
  - Asthenia [Unknown]
  - Pyrexia [Unknown]
